FAERS Safety Report 18290409 (Version 2)
Quarter: 2022Q2

REPORT INFORMATION
  Report Type: Spontaneous
  Country: CH (occurrence: CH)
  Receive Date: 20200921
  Receipt Date: 20220407
  Transmission Date: 20220720
  Serious: Yes (Other)
  Sender: FDA-Public Use
  Company Number: CH-SM-2020-15547

PATIENT
  Age: 56 Year
  Sex: Female

DRUGS (7)
  1. DABIGATRAN [Suspect]
     Active Substance: DABIGATRAN
     Indication: Cerebral thrombosis
     Dates: start: 20200810, end: 20200813
  2. HEPARIN [Suspect]
     Active Substance: HEPARIN SODIUM
     Indication: Cerebral thrombosis
     Dates: start: 20200821, end: 20200928
  3. ENOXAPARIN [Suspect]
     Active Substance: ENOXAPARIN
     Indication: Cerebral thrombosis
     Dates: start: 20200814, end: 20200818
  4. ENOXAPARIN [Suspect]
     Active Substance: ENOXAPARIN
     Dates: start: 20200819, end: 20200821
  5. ESOMEPRAZOLE [Suspect]
     Active Substance: ESOMEPRAZOLE
     Indication: Product used for unknown indication
     Dates: start: 20200629, end: 20200730
  6. ZOPICLONE [Concomitant]
     Active Substance: ZOPICLONE
     Indication: Product used for unknown indication
     Dates: start: 20200728, end: 20200822
  7. ACETAMINOPHEN [Concomitant]
     Active Substance: ACETAMINOPHEN
     Indication: Product used for unknown indication
     Dates: start: 20200707, end: 20200711

REACTIONS (1)
  - Hepatocellular injury [Recovered/Resolved]

NARRATIVE: CASE EVENT DATE: 20200819
